FAERS Safety Report 7375356-0 (Version None)
Quarter: 2011Q1

REPORT INFORMATION
  Report Type: 
  Country: None (occurrence: None)
  Receive Date: 20110325
  Receipt Date: 20110228
  Transmission Date: 20110831
  Serious: No
  Sender: FDA-Public Use
  Company Number: US-B.I. PHARMACEUTICALS,INC./RIDGEFIELD-2011-BP-05637BP

PATIENT
  Sex: Female

DRUGS (1)
  1. PRADAXA [Suspect]
     Dosage: 150 MG
     Dates: start: 20110101, end: 20110217

REACTIONS (4)
  - RASH PRURITIC [None]
  - PAIN OF SKIN [None]
  - SKIN BURNING SENSATION [None]
  - RASH [None]
